FAERS Safety Report 6745718-0 (Version None)
Quarter: 2010Q2

REPORT INFORMATION
  Report Type: 
  Country: None (occurrence: None)
  Receive Date: 20100528
  Receipt Date: 20100513
  Transmission Date: 20101027
  Serious: Yes (Other)
  Sender: FDA-Public Use
  Company Number: PHFR2010GB00454

PATIENT
  Sex: Male

DRUGS (4)
  1. CLOZARIL [Suspect]
     Indication: SCHIZOPHRENIA
     Dosage: UNK
     Route: 048
     Dates: start: 20100402, end: 20100420
  2. VALPROATE SODIUM [Concomitant]
     Indication: AFFECTIVE DISORDER
     Dosage: 1500 MG, UNK
     Route: 048
     Dates: start: 20091124
  3. ARIPIPRAZOLE [Concomitant]
     Dosage: 30 MG, UNK
     Dates: start: 20100126
  4. HALOPERIDOL [Concomitant]
     Dosage: 15 MG, UNK
     Dates: start: 20100319

REACTIONS (6)
  - CARDIAC DISORDER [None]
  - CARDIAC FAILURE [None]
  - CONFUSIONAL STATE [None]
  - DYSPNOEA [None]
  - OEDEMA PERIPHERAL [None]
  - OXYGEN SATURATION DECREASED [None]
